FAERS Safety Report 12153755 (Version 2)
Quarter: 2016Q1

REPORT INFORMATION
  Report Type: Spontaneous
  Country: FR (occurrence: FR)
  Receive Date: 20160307
  Receipt Date: 20160310
  Transmission Date: 20160526
  Serious: Yes (Other)
  Sender: FDA-Public Use
  Company Number: FR-009507513-1603FRA001430

PATIENT
  Age: 80 Year
  Sex: Female

DRUGS (4)
  1. INTERFERON (UNSPECIFIED) [Suspect]
     Active Substance: UNSPECIFIED INGREDIENT
  2. DACLATASVIR. [Suspect]
     Active Substance: DACLATASVIR
  3. SOFOSBUVIR [Suspect]
     Active Substance: SOFOSBUVIR
  4. RIBAVIRIN. [Suspect]
     Active Substance: RIBAVIRIN
     Route: 048

REACTIONS (7)
  - Eye disorder [Unknown]
  - Myalgia [Unknown]
  - Lens dislocation [Unknown]
  - Cataract [Unknown]
  - Macular hole [Unknown]
  - Arthralgia [Unknown]
  - Retinal disorder [Unknown]
